FAERS Safety Report 10070085 (Version 1)
Quarter: 2014Q2

REPORT INFORMATION
  Report Type: Spontaneous
  Country: US (occurrence: None)
  Receive Date: 20140409
  Receipt Date: 20140409
  Transmission Date: 20141212
  Serious: Yes (Hospitalization)
  Sender: FDA-Public Use
  Company Number: None

PATIENT
  Age: 40 Year
  Sex: Male
  Weight: 75.07 kg

DRUGS (3)
  1. EVEROLIMUS [Suspect]
     Indication: IMMUNOSUPPRESSION
     Dosage: Q12H
     Route: 048
     Dates: start: 20140321
  2. TACROLIMUS [Concomitant]
  3. PREDNISONE [Concomitant]

REACTIONS (3)
  - Blood creatine increased [None]
  - Urinary incontinence [None]
  - Bladder spasm [None]
